FAERS Safety Report 21364102 (Version 5)
Quarter: 2024Q2

REPORT INFORMATION
  Report Type: Spontaneous
  Country: CA (occurrence: CA)
  Receive Date: 20220922
  Receipt Date: 20240627
  Transmission Date: 20240715
  Serious: Yes (Life-Threatening, Hospitalization, Other)
  Sender: FDA-Public Use
  Company Number: CA-PFIZER INC-202201177029

PATIENT
  Age: 53 Year
  Sex: Female

DRUGS (6)
  1. ALPRAZOLAM [Suspect]
     Active Substance: ALPRAZOLAM
     Dosage: APPROXIMATELY
     Route: 048
  2. LORAZEPAM [Suspect]
     Active Substance: LORAZEPAM
     Dosage: APPROXIMATELY
     Route: 048
  3. CLONAZEPAM [Suspect]
     Active Substance: CLONAZEPAM
     Dosage: APPROXIMATELY
     Route: 048
  4. QUETIAPINE [Suspect]
     Active Substance: QUETIAPINE
     Dosage: APPROXIMATELY
     Route: 048
  5. ZOPICLONE [Suspect]
     Active Substance: ZOPICLONE
     Dosage: APPROXIMATELY
     Route: 048
  6. ACETAMINOPHEN\DEXTROMETHORPHAN\DOXYLAMINE SUCCINATE\PSEUDOEPHEDRINE HY [Suspect]
     Active Substance: ACETAMINOPHEN\DEXTROMETHORPHAN\DOXYLAMINE SUCCINATE\PSEUDOEPHEDRINE HYDROCHLORIDE
     Dosage: 1 BOTTLE
     Route: 048

REACTIONS (10)
  - Intentional overdose [Recovering/Resolving]
  - Loss of consciousness [Recovered/Resolved]
  - Toxicity to various agents [Recovering/Resolving]
  - Blood pressure decreased [Recovered/Resolved]
  - Respiratory rate decreased [Recovered/Resolved]
  - Sinus tachycardia [Recovered/Resolved]
  - Suicide attempt [Recovering/Resolving]
  - Lactic acidosis [Recovering/Resolving]
  - Anion gap increased [Recovered/Resolved]
  - Osmolar gap increased [Recovered/Resolved]
